FAERS Safety Report 9092234 (Version 1)
Quarter: 2013Q1

REPORT INFORMATION
  Report Type: Report from Study
  Country: US (occurrence: US)
  Receive Date: 20130131
  Receipt Date: 20130131
  Transmission Date: 20140127
  Serious: No
  Sender: FDA-Public Use
  Company Number: US-ABBOTT-12P-163-1022374-00

PATIENT
  Age: 62 Year
  Sex: Female

DRUGS (4)
  1. HUMIRA [Suspect]
     Indication: COLITIS ULCERATIVE
     Dates: start: 20121115
  2. HUMIRA [Suspect]
     Dates: start: 20121129
  3. ASACOL HD [Concomitant]
     Indication: COLITIS ULCERATIVE
  4. XANAX [Concomitant]
     Indication: SLEEP DISORDER THERAPY
     Dosage: HOUR OF SLEEP

REACTIONS (2)
  - Pyrexia [Not Recovered/Not Resolved]
  - Arthralgia [Not Recovered/Not Resolved]
